FAERS Safety Report 16299682 (Version 3)
Quarter: 2019Q3

REPORT INFORMATION
  Report Type: Spontaneous
  Country: IR (occurrence: IR)
  Receive Date: 20190510
  Receipt Date: 20190703
  Transmission Date: 20191004
  Serious: Yes (Other)
  Sender: FDA-Public Use
  Company Number: PHHY2019IR085040

PATIENT
  Age: 5 Year
  Sex: Male
  Weight: 13.5 kg

DRUGS (1)
  1. OMNITROPE [Suspect]
     Active Substance: SOMATROPIN
     Indication: GROWTH HORMONE DEFICIENCY
     Dosage: 0.04 MG, UNK
     Route: 058
     Dates: start: 20170923, end: 20190303

REACTIONS (8)
  - Injection site movement impairment [Not Recovered/Not Resolved]
  - Injection site infection [Not Recovered/Not Resolved]
  - Injection site inflammation [Not Recovered/Not Resolved]
  - Arthralgia [Unknown]
  - Cellulitis [Unknown]
  - Rash erythematous [Unknown]
  - Drug hypersensitivity [Not Recovered/Not Resolved]
  - Gait disturbance [Unknown]

NARRATIVE: CASE EVENT DATE: 20190303
